FAERS Safety Report 7629612 (Version 9)
Quarter: 2012Q4

REPORT INFORMATION
  Report Type: 
  Country: US (occurrence: US)
  Receive Date: 20101014
  Receipt Date: 20121217
  Transmission Date: 20130627
  Serious: Yes (Hospitalization, Other)
  Sender: FDA-Public Use
  Company Number: US-ROCHE-709494

PATIENT
  Age: 17 Year
  Sex: Female
  Weight: 38.6 kg

DRUGS (11)
  1. ACCUTANE [Suspect]
     Indication: ACNE
     Route: 048
  2. ACCUTANE [Suspect]
     Route: 048
  3. ACCUTANE [Suspect]
     Route: 048
     Dates: start: 20030728, end: 200309
  4. KENALOG [Concomitant]
     Indication: ACNE
     Dosage: STRENGTH: 2.5MG/CC
     Route: 026
  5. VITAMIN E [Concomitant]
     Route: 065
  6. BREVOXYL [Concomitant]
  7. CLINDAGEL [Concomitant]
     Dosage: FREQUENCY EVERY DAY, GEL
     Route: 065
  8. SEASONALE [Concomitant]
     Indication: CONTRACEPTION
     Dosage: STRENGTH: 0.15/0.03 MG
     Route: 065
  9. DESOWEN [Concomitant]
     Route: 065
  10. BENZOCAINE [Concomitant]
     Dosage: BENZOCAINE/PRILOCAINE AS BETACAINE PLUS
     Route: 065
  11. PRILOCAINE [Concomitant]
     Dosage: BENZOCAINE/PRILOCAINE AS BETACAINE PLUS
     Route: 065

REACTIONS (13)
  - Crohn^s disease [Unknown]
  - Anal fistula [Unknown]
  - Intestinal obstruction [Unknown]
  - Perirectal abscess [Unknown]
  - Inflammatory bowel disease [Unknown]
  - Stress [Unknown]
  - Iron deficiency anaemia [Unknown]
  - Dry skin [Recovering/Resolving]
  - Blood triglycerides increased [Unknown]
  - Chapped lips [Unknown]
  - Acne [Unknown]
  - Nausea [Unknown]
  - Haemoglobin decreased [Recovered/Resolved]
